FAERS Safety Report 25613649 (Version 1)
Quarter: 2025Q3

REPORT INFORMATION
  Report Type: Spontaneous
  Country: US (occurrence: US)
  Receive Date: 20250728
  Receipt Date: 20250728
  Transmission Date: 20251020
  Serious: No
  Sender: JOHNSON AND JOHNSON
  Company Number: US-JNJFOC-20250730712

PATIENT
  Sex: Male

DRUGS (2)
  1. TALVEY [Suspect]
     Active Substance: TALQUETAMAB-TGVS
     Indication: Plasma cell myeloma
     Route: 065
  2. T-VEK [Concomitant]
     Indication: Malignant melanoma

REACTIONS (12)
  - Off label use [Unknown]
  - Onychomadesis [Unknown]
  - Ageusia [Unknown]
  - Pruritus [Unknown]
  - Alopecia [Unknown]
  - Hair colour changes [Unknown]
  - Sensitive skin [Unknown]
  - Nail disorder [Unknown]
  - Nail disorder [Unknown]
  - Nail growth abnormal [Unknown]
  - Injection site discolouration [Unknown]
  - Hair colour changes [Unknown]
